FAERS Safety Report 18571753 (Version 1)
Quarter: 2020Q4

REPORT INFORMATION
  Report Type: Spontaneous
  Country: US (occurrence: US)
  Receive Date: 20201202
  Receipt Date: 20201202
  Transmission Date: 20210114
  Serious: No
  Sender: FDA-Public Use
  Company Number: US-GILEAD-2020-0506247

PATIENT
  Age: 54 Year
  Sex: Female

DRUGS (8)
  1. POTASSIUM [Concomitant]
     Active Substance: POTASSIUM
  2. LOSARTAN POTASSIUM. [Concomitant]
     Active Substance: LOSARTAN POTASSIUM
  3. TRULICITY [Concomitant]
     Active Substance: DULAGLUTIDE
  4. METFORMIN HYDROCHLORIDE. [Concomitant]
     Active Substance: METFORMIN HYDROCHLORIDE
  5. AMITRIPTYLINE HYDROCHLORIDE. [Concomitant]
     Active Substance: AMITRIPTYLINE HYDROCHLORIDE
  6. BASAGLAR [Concomitant]
     Active Substance: INSULIN GLARGINE
  7. SOFOSBUVIR;VELPATASVIR [Suspect]
     Active Substance: SOFOSBUVIR\VELPATASVIR
     Indication: CHRONIC HEPATITIS C
     Dosage: 1 DOSAGE FORM, QD
     Route: 048
     Dates: start: 202009, end: 20201125
  8. MAGNESIUM B [Concomitant]

REACTIONS (1)
  - Somnolence [Unknown]
